FAERS Safety Report 4190818 (Version 2)
Quarter: 2020Q3

REPORT INFORMATION
  Report Type: Report from Study
  Country: US (occurrence: US)
  Receive Date: 20040816
  Receipt Date: 20040928
  Transmission Date: 20201105
  Serious: Yes (Hospitalization)
  Sender: FDA-Public Use
  Company Number: US-JNJFOC-20040801336

PATIENT
  Age: 55 Year
  Sex: Female

DRUGS (23)
  1. PLACEBO [Suspect]
     Active Substance: UNSPECIFIED INGREDIENT
     Route: 042
  2. ASPIRIN. [Concomitant]
     Active Substance: ASPIRIN
     Indication: HEADACHE
     Route: 049
  3. PLACEBO [Suspect]
     Active Substance: UNSPECIFIED INGREDIENT
     Route: 042
  4. PLACEBO [Suspect]
     Active Substance: UNSPECIFIED INGREDIENT
     Route: 042
  5. INFLIXIMAB [Suspect]
     Active Substance: INFLIXIMAB
     Route: 042
  6. PLACEBO [Suspect]
     Active Substance: UNSPECIFIED INGREDIENT
     Route: 042
  7. PREMARIN [Concomitant]
     Active Substance: ESTROGENS, CONJUGATED
     Indication: HORMONE REPLACEMENT THERAPY
     Route: 049
  8. ASPIRIN. [Concomitant]
     Active Substance: ASPIRIN
     Route: 049
  9. INFLIXIMAB [Suspect]
     Active Substance: INFLIXIMAB
     Route: 042
  10. PLACEBO [Suspect]
     Active Substance: UNSPECIFIED INGREDIENT
     Indication: PSORIASIS
     Route: 042
  11. INFLIXIMAB [Suspect]
     Active Substance: INFLIXIMAB
     Route: 042
  12. INFLIXIMAB [Suspect]
     Active Substance: INFLIXIMAB
     Route: 042
  13. PLACEBO [Suspect]
     Active Substance: UNSPECIFIED INGREDIENT
     Route: 042
  14. MEDROXYPROGESTERONE ACETATE. [Concomitant]
     Active Substance: MEDROXYPROGESTERONE ACETATE
     Indication: HORMONE REPLACEMENT THERAPY
     Route: 049
  15. INFLIXIMAB [Suspect]
     Active Substance: INFLIXIMAB
     Route: 042
  16. INFLIXIMAB [Suspect]
     Active Substance: INFLIXIMAB
     Route: 042
  17. INFLIXIMAB [Suspect]
     Active Substance: INFLIXIMAB
     Indication: PSORIASIS
     Route: 042
  18. ALBUTEROL. [Concomitant]
     Active Substance: ALBUTEROL
     Route: 055
  19. INFLIXIMAB [Suspect]
     Active Substance: INFLIXIMAB
     Route: 042
  20. PLACEBO [Suspect]
     Active Substance: UNSPECIFIED INGREDIENT
     Route: 042
  21. INFLIXIMAB [Suspect]
     Active Substance: INFLIXIMAB
     Route: 042
  22. PLACEBO [Suspect]
     Active Substance: UNSPECIFIED INGREDIENT
     Route: 042
  23. PLACEBO [Suspect]
     Active Substance: UNSPECIFIED INGREDIENT
     Route: 042

REACTIONS (5)
  - Drug interaction [None]
  - Fallopian tube cancer [None]
  - Diverticulum [None]
  - Abdominal adhesions [None]
  - Tubo-ovarian abscess [Recovered/Resolved]

NARRATIVE: CASE EVENT DATE: 20040723
